FAERS Safety Report 6693961-1 (Version None)
Quarter: 2010Q2

REPORT INFORMATION
  Report Type: 
  Country: None (occurrence: None)
  Receive Date: 20100423
  Receipt Date: 20100414
  Transmission Date: 20101027
  Serious: Yes (Other)
  Sender: FDA-Public Use
  Company Number: JP-PFIZER INC-2010046857

PATIENT
  Age: 59 Year
  Sex: Female

DRUGS (3)
  1. LIPITOR [Suspect]
     Indication: HYPERLIPIDAEMIA
     Dosage: 10 MG, DAILY
     Route: 048
     Dates: start: 20091019, end: 20091116
  2. PREDNISOLONE [Suspect]
     Dosage: 30 MG, UNK
     Route: 048
     Dates: start: 20091006, end: 20091102
  3. PREDNISOLONE [Suspect]
     Dosage: 10 MG, 1X/DAY
     Dates: start: 20091103

REACTIONS (2)
  - ASTHENIA [None]
  - BLOOD CREATINE PHOSPHOKINASE INCREASED [None]
